FAERS Safety Report 8405436-X (Version None)
Quarter: 2012Q2

REPORT INFORMATION
  Report Type: 
  Country: None (occurrence: None)
  Receive Date: 20120604
  Receipt Date: 20120523
  Transmission Date: 20120825
  Serious: Yes (Hospitalization, Other)
  Sender: FDA-Public Use
  Company Number: CH-BIOGENIDEC-2012BI018838

PATIENT
  Age: 37 Year
  Sex: Female

DRUGS (3)
  1. METOPROLOL SUCCINATE [Concomitant]
  2. EFFEXOR [Concomitant]
  3. TYSABRI [Suspect]
     Indication: RELAPSING-REMITTING MULTIPLE SCLEROSIS
     Route: 042
     Dates: start: 20100401

REACTIONS (1)
  - DYSGEUSIA [None]
